FAERS Safety Report 16153113 (Version 2)
Quarter: 2019Q3

REPORT INFORMATION
  Report Type: Report from Study
  Country: AT (occurrence: AT)
  Receive Date: 20190403
  Receipt Date: 20190904
  Transmission Date: 20191004
  Serious: Yes (Hospitalization)
  Sender: FDA-Public Use
  Company Number: AT-ROCHE-2290326

PATIENT
  Age: 62 Year
  Sex: Female
  Weight: 80 kg

DRUGS (25)
  1. DAFLON [DIOSMIN;HESPERIDIN] [Concomitant]
     Route: 065
  2. PASPERTIN [METOCLOPRAMIDE HYDROCHLORIDE] [Concomitant]
     Active Substance: METOCLOPRAMIDE HYDROCHLORIDE
     Route: 065
     Dates: start: 20171212
  3. TEMESTA [LORAZEPAM] [Concomitant]
     Active Substance: LORAZEPAM
     Route: 065
     Dates: start: 20190226
  4. LASIX [Concomitant]
     Active Substance: FUROSEMIDE
     Dosage: ONGOING = CHECKED
     Route: 065
  5. SUCRALFATE. [Concomitant]
     Active Substance: SUCRALFATE
     Dosage: ONGOING = CHECKED
     Route: 065
  6. TRASTUZUMAB. [Suspect]
     Active Substance: TRASTUZUMAB
     Indication: HER-2 POSITIVE BREAST CANCER
     Dosage: MOST RECENT DOSE PRIOR TO THE EVENT: 23/OCT/2018, 21/NOV/2017
     Route: 042
     Dates: start: 20170306
  7. PANTOLOC [PANTOPRAZOLE] [Concomitant]
     Active Substance: PANTOPRAZOLE SODIUM
     Route: 065
     Dates: start: 20170302
  8. HYDAL [Concomitant]
     Active Substance: HYDROMORPHONE HYDROCHLORIDE
     Indication: BACK PAIN
     Dosage: ONGOING = CHECKED
     Route: 065
     Dates: start: 20181227
  9. ZOLPIDEM [Concomitant]
     Active Substance: ZOLPIDEM TARTRATE
     Route: 065
     Dates: start: 20190215, end: 20190315
  10. ZYRTEC (AUSTRIA) [Concomitant]
     Indication: PRURITUS
     Route: 065
     Dates: start: 20170327
  11. NAVELBINE [Suspect]
     Active Substance: VINORELBINE TARTRATE
     Indication: HER-2 POSITIVE BREAST CANCER
     Dosage: MOST RECENT DOSE PRIOR TO THE EVENT: 30/MAY/2017, 27/JUN/2017
     Route: 048
     Dates: start: 20170306
  12. PERTUZUMAB. [Suspect]
     Active Substance: PERTUZUMAB
     Indication: HER-2 POSITIVE BREAST CANCER
     Dosage: LAST DOSE 21/NOV/2017
     Route: 042
     Dates: start: 20170306
  13. LAEVOLAC [Concomitant]
     Active Substance: LACTULOSE
     Route: 065
     Dates: start: 20171212
  14. NOVALGIN (METAMIZOLE SODIUM) [Concomitant]
     Active Substance: METAMIZOLE SODIUM
     Indication: BACK PAIN
     Route: 065
     Dates: start: 20171212
  15. TRITTICO [Concomitant]
     Active Substance: TRAZODONE HYDROCHLORIDE
     Route: 065
     Dates: start: 20181215, end: 20190226
  16. LYRICA [Concomitant]
     Active Substance: PREGABALIN
     Indication: BACK PAIN
     Route: 065
     Dates: start: 20181227, end: 20190226
  17. XELODA [Suspect]
     Active Substance: CAPECITABINE
     Indication: HER-2 POSITIVE BREAST CANCER
     Dosage: DATE OF LAST DOSE 10/SEP/2018
     Route: 048
     Dates: start: 20180904
  18. NOVALGIN (METAMIZOLE SODIUM) [Concomitant]
     Active Substance: METAMIZOLE SODIUM
     Indication: HEPATIC PAIN
     Dosage: ONGOING = CHECKED
     Route: 065
     Dates: start: 20170327
  19. HYDAL [Concomitant]
     Active Substance: HYDROMORPHONE HYDROCHLORIDE
     Indication: BACK PAIN
     Route: 065
     Dates: start: 20180628, end: 20190226
  20. NOVALGIN (METAMIZOLE SODIUM) [Concomitant]
     Active Substance: METAMIZOLE SODIUM
     Dosage: ONGOING = CHECKED
     Route: 065
     Dates: start: 20190315
  21. FORTECORTIN [DEXAMETHASONE] [Concomitant]
     Active Substance: DEXAMETHASONE
     Route: 065
     Dates: start: 20190215, end: 20190215
  22. FORTECORTIN [DEXAMETHASONE] [Concomitant]
     Active Substance: DEXAMETHASONE
     Dosage: ONGOING = CHECKED
     Route: 065
     Dates: start: 20190215
  23. TRASTUZUMAB EMTANSINE [Suspect]
     Active Substance: ADO-TRASTUZUMAB EMTANSINE
     Indication: HER-2 POSITIVE BREAST CANCER
     Dosage: MOST RECENT DOSE PRIOR TO THE EVENT: 24/APR/2018, 15/MAY/2018
     Route: 042
     Dates: start: 20171212
  24. MIRTAZAPIN [Concomitant]
     Active Substance: MIRTAZAPINE
     Dosage: ONGOING = CHECKED
     Route: 065
     Dates: start: 20190315
  25. CONCOR COR [Concomitant]
     Active Substance: BISOPROLOL FUMARATE
     Dosage: ONGOING = CHECKED
     Route: 065

REACTIONS (1)
  - Pulmonary embolism [Recovered/Resolved]

NARRATIVE: CASE EVENT DATE: 20190312
